FAERS Safety Report 8155886-4 (Version None)
Quarter: 2012Q1

REPORT INFORMATION
  Report Type: 
  Country: None (occurrence: None)
  Receive Date: 20120222
  Receipt Date: 20120216
  Transmission Date: 20120608
  Serious: Yes (Other)
  Sender: FDA-Public Use
  Company Number: US-BAYER-2012-016361

PATIENT
  Age: 52 Year
  Sex: Female

DRUGS (5)
  1. AVELOX [Suspect]
     Indication: BRONCHITIS
     Dosage: 400 MG, QD
     Route: 048
     Dates: start: 20120216, end: 20120216
  2. SINGULAIR [Concomitant]
  3. CELEXA [Concomitant]
  4. SIMVASTATIN [Concomitant]
  5. PREDNISONE [Concomitant]

REACTIONS (3)
  - URTICARIA [None]
  - DYSPNOEA [None]
  - RASH GENERALISED [None]
